FAERS Safety Report 16150003 (Version 1)
Quarter: 2019Q2

REPORT INFORMATION
  Report Type: Other
  Country: US (occurrence: US)
  Receive Date: 20190403
  Receipt Date: 20190403
  Transmission Date: 20190711
  Serious: Yes (Life-Threatening, Hospitalization)
  Sender: FDA-Public Use
  Company Number: US-EYWA PHARMA INC.-2065190

PATIENT
  Age: 47 Year
  Sex: Male

DRUGS (1)
  1. BACLOFEN. [Suspect]
     Active Substance: BACLOFEN
     Indication: BLADDER SPASM
     Route: 048

REACTIONS (4)
  - Hallucination, visual [None]
  - Withdrawal syndrome [Recovered/Resolved]
  - Respiratory failure [Unknown]
  - Hallucination, auditory [None]
